FAERS Safety Report 6656686-4 (Version None)
Quarter: 2010Q1

REPORT INFORMATION
  Report Type: 
  Country: None (occurrence: None)
  Receive Date: 20100329
  Receipt Date: 20100316
  Transmission Date: 20100710
  Serious: No
  Sender: FDA-Public Use
  Company Number: US-B.I. PHARMACEUTICALS,INC./RIDGEFIELD-2010-BP-03123BP

PATIENT
  Sex: Male

DRUGS (11)
  1. SPIRIVA [Suspect]
     Indication: CHRONIC OBSTRUCTIVE PULMONARY DISEASE
     Dosage: 18 MCG
     Route: 055
     Dates: start: 20091101
  2. OMEPRAZOLE [Concomitant]
     Indication: GASTROOESOPHAGEAL REFLUX DISEASE
     Dosage: 20 MG
     Route: 048
  3. METFORMIN HYDROCHLORIDE [Concomitant]
     Indication: DIABETES MELLITUS
  4. GLIPIZIDE [Concomitant]
     Indication: DIABETES MELLITUS
  5. ATENOLOL [Concomitant]
     Indication: HYPERTENSION
  6. AMLODIPINE [Concomitant]
     Indication: HYPERTENSION
  7. LIPITOR [Concomitant]
     Indication: BLOOD CHOLESTEROL INCREASED
  8. PLAVIX [Concomitant]
     Indication: CORONARY ARTERY DISEASE
  9. LYRICA [Concomitant]
     Indication: DIABETIC NEUROPATHY
     Dates: start: 20091101, end: 20100201
  10. ALLOPURINOL [Concomitant]
     Indication: GOUT
  11. NEUROGEN GEL [Concomitant]
     Indication: DIABETIC NEUROPATHY
     Dates: start: 20091101, end: 20100201

REACTIONS (2)
  - DIARRHOEA [None]
  - FLATULENCE [None]
